FAERS Safety Report 6714948-6 (Version None)
Quarter: 2010Q2

REPORT INFORMATION
  Report Type: 
  Country: None (occurrence: None)
  Receive Date: 20100506
  Receipt Date: 20100506
  Transmission Date: 20101027
  Serious: Yes (Other)
  Sender: FDA-Public Use
  Company Number: None

PATIENT
  Age: 6 Month
  Sex: Female
  Weight: 7.2576 kg

DRUGS (1)
  1. CONCENTRATED TYLENOL INFANT DROPS [Suspect]
     Indication: TEETHING
     Dosage: .8 ML EVERY 4 HOURS PO
     Route: 048
     Dates: start: 20100407, end: 20100407

REACTIONS (4)
  - CATATONIA [None]
  - CRYING [None]
  - PRODUCT QUALITY ISSUE [None]
  - VOMITING [None]
